FAERS Safety Report 24739011 (Version 1)
Quarter: 2024Q4

REPORT INFORMATION
  Report Type: Report from Study
  Country: DE (occurrence: DE)
  Receive Date: 20241216
  Receipt Date: 20241216
  Transmission Date: 20250114
  Serious: Yes (Hospitalization)
  Sender: ALEXION PHARMACEUTICALS
  Company Number: DE-ASTRAZENECA-202412GLO005848DE

PATIENT
  Age: 75 Year
  Weight: 96 kg

DRUGS (1)
  1. DURVALUMAB [Suspect]
     Active Substance: DURVALUMAB
     Indication: Hepatobiliary cancer
     Dosage: 1500 MILLIGRAM
     Route: 065

REACTIONS (2)
  - COVID-19 [Recovering/Resolving]
  - Atrial flutter [Recovering/Resolving]
